FAERS Safety Report 10456399 (Version 1)
Quarter: 2014Q3

REPORT INFORMATION
  Report Type: Spontaneous
  Country: JP (occurrence: JP)
  Receive Date: 20140916
  Receipt Date: 20140916
  Transmission Date: 20150326
  Serious: Yes (Other)
  Sender: FDA-Public Use
  Company Number: JP-009507513-1409JPN006589

PATIENT
  Age: 35 Year
  Sex: Male

DRUGS (5)
  1. OLANZAPINE. [Concomitant]
     Active Substance: OLANZAPINE
     Dosage: DAILY DOSE:2.5MG,UNK
     Route: 048
     Dates: start: 20140630
  2. LORAZEPAM. [Concomitant]
     Active Substance: LORAZEPAM
     Dosage: DAILY DOSE:1.5MG,UNK
     Route: 048
     Dates: start: 20140417
  3. ESTAZOLAM. [Concomitant]
     Active Substance: ESTAZOLAM
     Dosage: DAILY DOSE 1 MG, UNK
     Route: 048
     Dates: start: 20140417
  4. REFLEX [Suspect]
     Active Substance: MIRTAZAPINE
     Indication: DEPRESSION
     Dosage: UNK
     Route: 048
     Dates: start: 20140417, end: 20140703
  5. ZOLPIDEM TARTRATE. [Concomitant]
     Active Substance: ZOLPIDEM TARTRATE
     Dosage: DAILY DOSE: 5MG,UNK
     Route: 048
     Dates: start: 20140417

REACTIONS (1)
  - Electrocardiogram PQ interval prolonged [Recovered/Resolved]

NARRATIVE: CASE EVENT DATE: 20140702
